FAERS Safety Report 5763479-9 (Version None)
Quarter: 2008Q2

REPORT INFORMATION
  Report Type: 
  Country: None (occurrence: None)
  Receive Date: 20080604
  Receipt Date: 20080604
  Transmission Date: 20081010
  Serious: No
  Sender: FDA-Public Use
  Company Number: None

PATIENT
  Age: 74 Year
  Sex: Male
  Weight: 97.1 kg

DRUGS (1)
  1. METOLAZONE [Suspect]
     Dosage: 2.5 MG OTHER PO
     Route: 048
     Dates: start: 20080124, end: 20080129

REACTIONS (2)
  - BLISTER [None]
  - PHOTOSENSITIVITY REACTION [None]
